FAERS Safety Report 5596480-9 (Version None)
Quarter: 2008Q1

REPORT INFORMATION
  Report Type: 
  Country: None (occurrence: None)
  Receive Date: 20080118
  Receipt Date: 20080111
  Transmission Date: 20080703
  Serious: Yes (Other)
  Sender: FDA-Public Use
  Company Number: US-PFIZER INC-2007040731

PATIENT
  Sex: Male

DRUGS (5)
  1. VIAGRA [Suspect]
     Indication: ERECTILE DYSFUNCTION
     Route: 048
     Dates: start: 20020410, end: 20030401
  2. TAMSULOSIN HCL [Concomitant]
     Indication: BENIGN PROSTATIC HYPERPLASIA
  3. ATENOLOL [Concomitant]
  4. LEXAPRO [Concomitant]
  5. ALLEGRA D 24 HOUR [Concomitant]

REACTIONS (5)
  - BLINDNESS [None]
  - OPTIC ISCHAEMIC NEUROPATHY [None]
  - RETINAL ARTERY OCCLUSION [None]
  - RETINAL ISCHAEMIA [None]
  - VISUAL FIELD DEFECT [None]
